FAERS Safety Report 8945225 (Version 1)
Quarter: 2012Q4

REPORT INFORMATION
  Report Type: 
  Country: US (occurrence: US)
  Receive Date: 20121204
  Receipt Date: 20121204
  Transmission Date: 20130627
  Serious: No
  Sender: FDA-Public Use
  Company Number: US-AMGEN-USASP2012059732

PATIENT
  Sex: Female

DRUGS (3)
  1. ENBREL [Suspect]
     Indication: RHEUMATOID ARTHRITIS
     Dosage: 50 UNK, qwk
     Route: 058
     Dates: start: 20060902, end: 20120916
  2. METHOTREXATE [Concomitant]
     Dosage: 12.5 UNK, UNK
  3. REMICADE [Concomitant]
     Dosage: UNK

REACTIONS (4)
  - Malaise [Unknown]
  - Rheumatoid arthritis [Not Recovered/Not Resolved]
  - Nasopharyngitis [Recovered/Resolved]
  - Influenza [Recovered/Resolved]
